FAERS Safety Report 24352959 (Version 1)
Quarter: 2024Q3

REPORT INFORMATION
  Report Type: Report from Study
  Country: CA (occurrence: CA)
  Receive Date: 20240923
  Receipt Date: 20240923
  Transmission Date: 20241017
  Serious: No
  Sender: ROCHE
  Company Number: CA-ROCHE-3466888

PATIENT
  Age: 62 Year
  Sex: Female
  Weight: 57.0 kg

DRUGS (3)
  1. HERCEPTIN [Suspect]
     Active Substance: TRASTUZUMAB
     Indication: Breast cancer
     Dosage: RECEIVING OUTSIDE RPAP, AND WAS PLANNED TO START BEFORE PERJETA
     Route: 065
     Dates: start: 202310
  2. PERJETA [Suspect]
     Active Substance: PERTUZUMAB
     Indication: Breast cancer
     Route: 042
     Dates: start: 20231023, end: 20231023
  3. PERJETA [Suspect]
     Active Substance: PERTUZUMAB
     Route: 042
     Dates: start: 20231110

REACTIONS (3)
  - Weight decreased [Not Recovered/Not Resolved]
  - Weight increased [Unknown]
  - Oxygen saturation decreased [Unknown]

NARRATIVE: CASE EVENT DATE: 20231101
